FAERS Safety Report 15341531 (Version 1)
Quarter: 2018Q3

REPORT INFORMATION
  Report Type: Report from Study
  Country: None (occurrence: CO)
  Receive Date: 20180901
  Receipt Date: 20180901
  Transmission Date: 20181010
  Serious: Yes (Hospitalization)
  Sender: FDA-Public Use
  Company Number: CO-ABBVIE-18K-036-2472632-00

PATIENT
  Age: 53 Year
  Sex: Female
  Weight: 39 kg

DRUGS (1)
  1. HUMIRA [Suspect]
     Active Substance: ADALIMUMAB
     Indication: CROHN^S DISEASE
     Route: 058
     Dates: start: 20180117, end: 20180824

REACTIONS (2)
  - Abdominal pain [Recovering/Resolving]
  - Rectal tenesmus [Recovering/Resolving]

NARRATIVE: CASE EVENT DATE: 20180829
